FAERS Safety Report 4489588-2 (Version None)
Quarter: 2004Q4

REPORT INFORMATION
  Report Type: 
  Country: None (occurrence: None)
  Receive Date: 20041026
  Receipt Date: 20041007
  Transmission Date: 20050328
  Serious: Yes (Death)
  Sender: FDA-Public Use
  Company Number: FR_040904784

PATIENT
  Age: 72 Year
  Sex: Male
  Weight: 65 kg

DRUGS (5)
  1. ZYPREXA [Suspect]
     Indication: BIPOLAR I DISORDER
     Dosage: 10 MG/1 DAY
     Dates: start: 20030101
  2. VALPROATE SODIUM [Concomitant]
  3. ANAFRANIL [Concomitant]
  4. GLUCOPHAGE [Concomitant]
  5. DIAMICRON (GLICLAZIDE) [Concomitant]

REACTIONS (1)
  - DEATH [None]
